FAERS Safety Report 8991068 (Version 1)
Quarter: 2012Q4

REPORT INFORMATION
  Report Type: Spontaneous
  Country: US (occurrence: None)
  Receive Date: 20121220
  Receipt Date: 20121220
  Transmission Date: 20130627
  Serious: Yes (Hospitalization, Other)
  Sender: FDA-Public Use
  Company Number: 2012-343

PATIENT
  Age: 60 Year
  Sex: Female

DRUGS (4)
  1. PRIALT [Suspect]
     Indication: PAIN
     Dosage: once/hour
     Route: 037
  2. PRIALT [Suspect]
     Indication: POST LAMINECTOMY SYNDROME
     Dosage: once/hour
     Route: 037
  3. CLONIDINE [Suspect]
     Dosage: once/hour
     Route: 037
  4. DILAUDID [Suspect]
     Dosage: once/hour
     Route: 037

REACTIONS (33)
  - Cardio-respiratory arrest [None]
  - Suicidal ideation [None]
  - Renal failure [None]
  - Bone decalcification [None]
  - Hypersensitivity [None]
  - Dermatitis [None]
  - Joint injury [None]
  - Vitamin D decreased [None]
  - Thyroid disorder [None]
  - Limb discomfort [None]
  - Blister [None]
  - Skin exfoliation [None]
  - Lymphoedema [None]
  - Feeling abnormal [None]
  - Emphysema [None]
  - Micturition disorder [None]
  - Rash [None]
  - Fluid retention [None]
  - Drug withdrawal syndrome [None]
  - Dysuria [None]
  - Pruritus [None]
  - Pain in extremity [None]
  - Memory impairment [None]
  - Confusional state [None]
  - Gait disturbance [None]
  - Dizziness [None]
  - Lethargy [None]
  - Dysarthria [None]
  - Vomiting [None]
  - Pyrexia [None]
  - Oedema peripheral [None]
  - Disorientation [None]
  - Hypersensitivity [None]
